FAERS Safety Report 7192757-4 (Version None)
Quarter: 2010Q4

REPORT INFORMATION
  Report Type: 
  Country: None (occurrence: None)
  Receive Date: 20101223
  Receipt Date: 20101215
  Transmission Date: 20110411
  Serious: Yes (Hospitalization)
  Sender: FDA-Public Use
  Company Number: DE-TEVA-260255GER

PATIENT
  Sex: Male

DRUGS (10)
  1. PREDNISOLONE [Suspect]
     Indication: PROSTATE CANCER METASTATIC
     Route: 048
     Dates: start: 20100505
  2. ABIRATERONE ACETATE [Suspect]
     Indication: PROSTATE CANCER METASTATIC
     Route: 048
     Dates: start: 20100505
  3. PLACEBO [Suspect]
     Indication: PROSTATE CANCER METASTATIC
     Route: 048
     Dates: start: 20100505
  4. ZOMETA [Concomitant]
     Indication: PROPHYLAXIS
  5. TRENANTONE [Concomitant]
     Indication: PROPHYLAXIS
     Dates: start: 20100421
  6. METAMIZOLE SODIUM [Concomitant]
     Indication: CANCER PAIN
     Dosage: 40 GTT AS REQUIRED
     Route: 048
     Dates: start: 20100811
  7. DICLOFENAC SODIUM [Concomitant]
     Indication: CANCER PAIN
     Route: 048
     Dates: start: 20101001
  8. PANTOPRAZOLE [Concomitant]
     Indication: PROPHYLAXIS AGAINST GASTROINTESTINAL ULCER
     Route: 048
     Dates: start: 20101001
  9. ZOMETA [Concomitant]
     Indication: HORMONE THERAPY
     Dates: start: 20081222
  10. TRENANTONE [Concomitant]
     Indication: HORMONE THERAPY
     Dates: start: 20091222

REACTIONS (1)
  - ANAEMIA [None]
